FAERS Safety Report 16440867 (Version 4)
Quarter: 2023Q2

REPORT INFORMATION
  Report Type: Spontaneous
  Country: SK (occurrence: SK)
  Receive Date: 20190617
  Receipt Date: 20230522
  Transmission Date: 20230722
  Serious: Yes (Hospitalization, Other)
  Sender: FDA-Public Use
  Company Number: SK-ALEXION PHARMACEUTICALS INC.-A201908908

PATIENT
  Age: 69 Year
  Sex: Female
  Weight: 75 kg

DRUGS (2)
  1. SOLIRIS [Suspect]
     Active Substance: ECULIZUMAB
     Dosage: 1200 MG, Q2W
     Route: 065
     Dates: end: 20190220
  2. SOLIRIS [Suspect]
     Active Substance: ECULIZUMAB
     Indication: Atypical haemolytic uraemic syndrome
     Dosage: 900 MG, QW
     Route: 065
     Dates: start: 20141231

REACTIONS (12)
  - Acute myocardial infarction [Recovered/Resolved]
  - Device related sepsis [Unknown]
  - Myocardial ischaemia [Unknown]
  - Coronary artery disease [Unknown]
  - Septic shock [Recovered/Resolved]
  - Meningococcal sepsis [Recovered/Resolved]
  - Bronchitis [Unknown]
  - Hypotension [Unknown]
  - Pneumonia [Recovered/Resolved]
  - Atypical haemolytic uraemic syndrome [Unknown]
  - Condition aggravated [Unknown]
  - Upper respiratory tract infection [Unknown]

NARRATIVE: CASE EVENT DATE: 20180101
